FAERS Safety Report 7197711-4 (Version None)
Quarter: 2010Q4

REPORT INFORMATION
  Report Type: 
  Country: None (occurrence: None)
  Receive Date: 20101208
  Receipt Date: 20101130
  Transmission Date: 20110411
  Serious: No
  Sender: FDA-Public Use
  Company Number: B0687528A

PATIENT
  Age: 32 Year
  Sex: Male

DRUGS (9)
  1. LAMIVUDINE [Suspect]
     Indication: HIV INFECTION
  2. DARUNAVR (FORMULATION UNKNOWN)(DARUNAVIR) [Concomitant]
     Indication: HIV INFECTION
  3. RITONAVIR [Suspect]
     Indication: HIV INFECTION
  4. TENOFOVIR DISOPROXIL FUMARATE [Suspect]
     Indication: HIV INFECTION
  5. COTRIM [Concomitant]
  6. STEROID [Concomitant]
  7. CLINDAMYCIN [Concomitant]
  8. PRIMAQUINE [Concomitant]
  9. DAPSONE [Concomitant]

REACTIONS (5)
  - ABSCESS [None]
  - IMMUNE RECONSTITUTION SYNDROME [None]
  - MYCOBACTERIUM AVIUM COMPLEX INFECTION [None]
  - NECROSIS [None]
  - PAROTITIS [None]
